FAERS Safety Report 19222618 (Version 3)
Quarter: 2021Q4

REPORT INFORMATION
  Report Type: Spontaneous
  Country: ES (occurrence: ES)
  Receive Date: 20210506
  Receipt Date: 20211011
  Transmission Date: 20220303
  Serious: Yes (Life-Threatening, Hospitalization, Other)
  Sender: FDA-Public Use
  Company Number: ES-NOVOPROD-798303

PATIENT
  Age: 66 Year
  Sex: Female
  Weight: 94.5 kg

DRUGS (15)
  1. OZEMPIC [Suspect]
     Active Substance: SEMAGLUTIDE
     Indication: Type 2 diabetes mellitus
     Dosage: 0.25 MG, QW
     Route: 058
     Dates: start: 20200825
  2. OZEMPIC [Suspect]
     Active Substance: SEMAGLUTIDE
     Indication: Weight control
     Dosage: 0.5 MG, QW
     Route: 058
     Dates: start: 20200922
  3. OZEMPIC [Suspect]
     Active Substance: SEMAGLUTIDE
     Dosage: UNK
     Route: 058
     Dates: start: 20201208
  4. OZEMPIC [Suspect]
     Active Substance: SEMAGLUTIDE
     Indication: Cardiovascular event prophylaxis
     Dosage: 1 MG, QW
     Route: 058
     Dates: start: 20201020, end: 20201124
  5. DAPAGLIFLOZIN PROPANEDIOL\METFORMIN HYDROCHLORIDE [Concomitant]
     Active Substance: DAPAGLIFLOZIN PROPANEDIOL\METFORMIN HYDROCHLORIDE
     Indication: Type 2 diabetes mellitus
     Dosage: 2 IU, QD(CAPSULE)
     Route: 065
     Dates: start: 2017
  6. NOVORAPID [Concomitant]
     Active Substance: INSULIN ASPART
     Indication: Type 2 diabetes mellitus
     Dosage: 54 IU, QD
     Route: 065
     Dates: start: 201911, end: 20200921
  7. NOVORAPID [Concomitant]
     Active Substance: INSULIN ASPART
     Dosage: 28 IU, QD
     Route: 065
     Dates: start: 20210401
  8. NOVORAPID [Concomitant]
     Active Substance: INSULIN ASPART
     Dosage: 30 IU, QD
     Route: 065
     Dates: start: 20200922, end: 20210401
  9. TOUJEO [Concomitant]
     Active Substance: INSULIN GLARGINE
     Indication: Type 2 diabetes mellitus
     Dosage: 62 IU, QD
     Route: 065
     Dates: start: 201611, end: 20200921
  10. TOUJEO [Concomitant]
     Active Substance: INSULIN GLARGINE
     Dosage: 50 IU, QD
     Route: 065
     Dates: start: 20200922
  11. ASPIRIN [Concomitant]
     Active Substance: ASPIRIN
     Indication: Prophylaxis
     Dosage: 100 MG, QD
     Route: 065
     Dates: start: 2006, end: 20201102
  12. ENALAPRIL [Concomitant]
     Active Substance: ENALAPRIL
     Indication: Hypertension
     Dosage: 40 MG, QD
     Route: 065
     Dates: start: 2011, end: 20201202
  13. SIMVASTATIN [Concomitant]
     Active Substance: SIMVASTATIN
     Indication: Dyslipidaemia
     Dosage: 40 MG, QD
     Route: 065
     Dates: start: 2009
  14. FENOFIBRATE [Concomitant]
     Active Substance: FENOFIBRATE
     Indication: Dyslipidaemia
     Dosage: 160 IU, QD
     Route: 065
     Dates: start: 2012
  15. NOVORAPID [Concomitant]
     Active Substance: INSULIN ASPART
     Indication: Type 2 diabetes mellitus
     Dosage: 28 IU, TID
     Route: 065
     Dates: start: 20200402

REACTIONS (2)
  - Atrial fibrillation [Not Recovered/Not Resolved]
  - Left ventricular failure [Recovered/Resolved]

NARRATIVE: CASE EVENT DATE: 20201122
